FAERS Safety Report 6779141-X (Version None)
Quarter: 2010Q2

REPORT INFORMATION
  Report Type: 
  Country: None (occurrence: None)
  Receive Date: 20100618
  Receipt Date: 20100611
  Transmission Date: 20101027
  Serious: Yes (Life-Threatening, Hospitalization)
  Sender: FDA-Public Use
  Company Number: GB-BRISTOL-MYERS SQUIBB COMPANY-15082126

PATIENT
  Age: 65 Year
  Sex: Male
  Weight: 69 kg

DRUGS (4)
  1. ERBITUX [Suspect]
     Indication: COLON CANCER METASTATIC
     Dosage: INITIALLY 760MG ONCE WEEKLY; RECENT INF: 19DEC2009 INF - 6
     Route: 042
     Dates: start: 20091130
  2. OXALIPLATIN [Concomitant]
     Indication: COLON CANCER METASTATIC
     Route: 042
     Dates: start: 20091130
  3. FLUOROURACIL [Concomitant]
     Indication: COLON CANCER METASTATIC
     Dosage: CONTI INF(PUMP): 4600MG 1 IN 2 WEEK;( 214.2857 MG)
     Route: 040
     Dates: start: 20091130
  4. FOLINIC ACID [Concomitant]
     Indication: COLON CANCER METASTATIC
     Dates: start: 20091130

REACTIONS (2)
  - PERITONITIS [None]
  - TUMOUR PERFORATION [None]
